FAERS Safety Report 7928718-4 (Version None)
Quarter: 2011Q4

REPORT INFORMATION
  Report Type: 
  Country: None (occurrence: None)
  Receive Date: 20111118
  Receipt Date: 20111114
  Transmission Date: 20120403
  Serious: Yes (Other)
  Sender: FDA-Public Use
  Company Number: IL-PFIZER INC-2011279222

PATIENT
  Age: 26 Year
  Sex: Male

DRUGS (2)
  1. METHYLPREDNISOLONE [Suspect]
     Indication: PROGRESSIVE MULTIPLE SCLEROSIS
     Dosage: UNK
  2. PREDNISONE TAB [Suspect]
     Indication: PROGRESSIVE MULTIPLE SCLEROSIS
     Dosage: 30 MG/DAY

REACTIONS (1)
  - PSYCHOTIC DISORDER [None]
